FAERS Safety Report 15015128 (Version 2)
Quarter: 2018Q2

REPORT INFORMATION
  Report Type: Report from Study
  Country: US (occurrence: US)
  Receive Date: 20180615
  Receipt Date: 20180621
  Transmission Date: 20180711
  Serious: Yes (Hospitalization, Other)
  Sender: FDA-Public Use
  Company Number: US-GILEAD-2018-0344210

PATIENT
  Age: 66 Year
  Sex: Female
  Weight: 107.5 kg

DRUGS (8)
  1. AMBRISENTAN [Suspect]
     Active Substance: AMBRISENTAN
     Indication: PRODUCT USED FOR UNKNOWN INDICATION
     Dosage: 10 MG, UNK
     Route: 048
     Dates: start: 201805, end: 20180609
  2. SYNTHROID [Concomitant]
     Active Substance: LEVOTHYROXINE SODIUM
  3. PROTONIX                           /00661201/ [Concomitant]
     Active Substance: OMEPRAZOLE
  4. INDERAL [Concomitant]
     Active Substance: PROPRANOLOL HYDROCHLORIDE
  5. INSULIN [Concomitant]
     Active Substance: INSULIN NOS
  6. ADCIRCA [Suspect]
     Active Substance: TADALAFIL
     Indication: PRODUCT USED FOR UNKNOWN INDICATION
     Dosage: 40 MG, UNK
     Route: 048
     Dates: end: 201806
  7. TRAMADOL. [Concomitant]
     Active Substance: TRAMADOL
  8. ALDACTONE [Concomitant]
     Active Substance: SPIRONOLACTONE

REACTIONS (3)
  - Abdominal pain upper [Unknown]
  - Ascites [Unknown]
  - Oedema [Unknown]

NARRATIVE: CASE EVENT DATE: 20180613
